FAERS Safety Report 22678815 (Version 2)
Quarter: 2023Q4

REPORT INFORMATION
  Report Type: Spontaneous
  Country: FR (occurrence: FR)
  Receive Date: 20230706
  Receipt Date: 20231110
  Transmission Date: 20240110
  Serious: Yes (Hospitalization, Other)
  Sender: FDA-Public Use
  Company Number: FR-AMERICAN REGENT INC-2023001586

PATIENT
  Age: 27 Year
  Sex: Female
  Weight: 90 kg

DRUGS (2)
  1. VENOFER [Suspect]
     Active Substance: IRON SUCROSE
     Indication: Iron deficiency anaemia
     Dosage: 2 DOSAGE FORM, 1 IN 1 TOTAL
     Route: 042
     Dates: start: 20230517, end: 20230517
  2. VENOFER [Suspect]
     Active Substance: IRON SUCROSE
     Dosage: 2 DOSAGE FORM, 1 IN 1 TOTAL
     Route: 042
     Dates: start: 20230519, end: 20230519

REACTIONS (3)
  - Pulmonary embolism [Recovered/Resolved]
  - Caesarean section [Recovered/Resolved]
  - Maternal exposure during pregnancy [Unknown]

NARRATIVE: CASE EVENT DATE: 20230517
